FAERS Safety Report 14727726 (Version 1)
Quarter: 2018Q2

REPORT INFORMATION
  Report Type: Spontaneous
  Country: DE (occurrence: DE)
  Receive Date: 20180406
  Receipt Date: 20180406
  Transmission Date: 20180711
  Serious: Yes (Other)
  Sender: FDA-Public Use
  Company Number: DE-TEVA-2018-DE-875631

PATIENT
  Age: 68 Year
  Sex: Female

DRUGS (4)
  1. MARCUMAR [Concomitant]
     Active Substance: PHENPROCOUMON
     Dosage: FOR A LONG TIME
  2. METOPROLOLSUCCINAT 1A PHARMA 47,5 MG [Concomitant]
  3. GABAPENTIN-RATIOPHARM 300 MG HARTKAPSELN [Suspect]
     Active Substance: GABAPENTIN
     Indication: NEURALGIA
     Dosage: 300 MILLIGRAM DAILY;
     Dates: start: 2018, end: 2018
  4. NOVALGIN (METAMIZOLE SODIUM) [Concomitant]
     Active Substance: METAMIZOLE SODIUM

REACTIONS (1)
  - International normalised ratio increased [Unknown]
